FAERS Safety Report 11401948 (Version 1)
Quarter: 2015Q3

REPORT INFORMATION
  Report Type: Spontaneous
  Country: US (occurrence: None)
  Receive Date: 20150819
  Receipt Date: 20150819
  Transmission Date: 20151125
  Serious: Yes (Other)
  Sender: FDA-Public Use
  Company Number: None

PATIENT
  Age: 27 Year
  Sex: Female
  Weight: 63.5 kg

DRUGS (2)
  1. ZIPRASIDONE. [Suspect]
     Active Substance: ZIPRASIDONE
     Route: 048
  2. ZIPRASIDONE. [Suspect]
     Active Substance: ZIPRASIDONE
     Indication: SCHIZOPHRENIA
     Route: 048
     Dates: start: 20150317, end: 20150512

REACTIONS (3)
  - Drug ineffective [None]
  - Product substitution issue [None]
  - Muscle spasms [None]

NARRATIVE: CASE EVENT DATE: 20150317
